FAERS Safety Report 19615780 (Version 3)
Quarter: 2022Q2

REPORT INFORMATION
  Report Type: Spontaneous
  Country: US (occurrence: US)
  Receive Date: 20210727
  Receipt Date: 20220624
  Transmission Date: 20220721
  Serious: Yes (Other)
  Sender: FDA-Public Use
  Company Number: US-PFIZER INC-2021849273

PATIENT
  Age: 71 Year
  Sex: Female

DRUGS (1)
  1. DEPO-ESTRADIOL [Suspect]
     Active Substance: ESTRADIOL CYPIONATE
     Indication: Hysterectomy
     Dosage: UNK (QUANTITY FOR 90 DAYS)

REACTIONS (7)
  - Upper limb fracture [Unknown]
  - Arthralgia [Unknown]
  - Fall [Unknown]
  - Frustration tolerance decreased [Unknown]
  - Nasopharyngitis [Unknown]
  - Malaise [Unknown]
  - Anxiety [Unknown]
